FAERS Safety Report 13047593 (Version 1)
Quarter: 2016Q4

REPORT INFORMATION
  Report Type: Spontaneous
  Country: US (occurrence: US)
  Receive Date: 20161220
  Receipt Date: 20161220
  Transmission Date: 20170207
  Serious: Yes (Other)
  Sender: FDA-Public Use
  Company Number: US-ALLERGAN-1680852US

PATIENT
  Age: 90 Year
  Sex: Female

DRUGS (1)
  1. BOTULINUM TOXIN TYPE A UNK [Suspect]
     Active Substance: BOTULINUM TOXIN TYPE A
     Indication: OESOPHAGEAL ACHALASIA
     Dosage: 80 UNITS, SINGLE
     Route: 030

REACTIONS (8)
  - Urinary tract infection [Unknown]
  - Acute respiratory failure [Unknown]
  - Botulism [Unknown]
  - Intensive care unit acquired weakness [Unknown]
  - Off label use [Unknown]
  - Decubitus ulcer [Unknown]
  - Pneumonia [Unknown]
  - Paralysis [Unknown]
